FAERS Safety Report 9898107 (Version 2)
Quarter: 2014Q1

REPORT INFORMATION
  Report Type: Spontaneous
  Country: US (occurrence: US)
  Receive Date: 20140214
  Receipt Date: 20140214
  Transmission Date: 20141002
  Serious: No
  Sender: FDA-Public Use
  Company Number: US-GILEAD-2011-0040795

PATIENT
  Age: 79 Year
  Sex: Female
  Weight: 53.07 kg

DRUGS (8)
  1. LETAIRIS [Suspect]
     Indication: PULMONARY HYPERTENSION
     Route: 048
     Dates: start: 20110523, end: 20110615
  2. ADCIRCA [Concomitant]
     Indication: PULMONARY HYPERTENSION
  3. COUMADIN [Concomitant]
  4. SIMVASTATIN [Concomitant]
     Indication: BLOOD CHOLESTEROL INCREASED
  5. FUROSEMIDE [Concomitant]
  6. GLYBURIDE [Concomitant]
     Indication: DIABETES MELLITUS
  7. BUPRION [Concomitant]
  8. SYNTHROID [Concomitant]
     Indication: HYPOTHYROIDISM

REACTIONS (3)
  - Unevaluable event [Unknown]
  - Oedema peripheral [Recovering/Resolving]
  - Weight increased [Unknown]
